FAERS Safety Report 25611190 (Version 1)
Quarter: 2025Q3

REPORT INFORMATION
  Report Type: Spontaneous
  Country: PR (occurrence: None)
  Receive Date: 20250725
  Receipt Date: 20250725
  Transmission Date: 20251020
  Serious: Yes (Hospitalization)
  Sender: FDA-CTU
  Company Number: None

PATIENT
  Age: 50 Year
  Sex: Female

DRUGS (11)
  1. REVLIMID [Suspect]
     Active Substance: LENALIDOMIDE
     Indication: Plasma cell myeloma
     Dosage: 10 MG DAILY ORAL ?
     Route: 048
     Dates: start: 20201114, end: 20250425
  2. LENALIDOMIDE [Suspect]
     Active Substance: LENALIDOMIDE
     Indication: Plasma cell myeloma
     Dosage: 10 MG DAILY ORAL ?
     Route: 048
     Dates: start: 20250426
  3. FLUOCINONIDE 0.05% SOLN 60ML [Concomitant]
  4. SERTRALINE [Concomitant]
     Active Substance: SERTRALINE HYDROCHLORIDE
  5. MONTELUKAST SODIUM [Concomitant]
     Active Substance: MONTELUKAST SODIUM
  6. CYANOCOBALAMIN 1000MCG/ML INJ, 10ML [Concomitant]
  7. NEURONTIN 300MG CAPSULES [Concomitant]
  8. DESYREL 100MG TABLETS [Concomitant]
  9. LEVOTHROID 0.025MG TABS(REFORM) [Concomitant]
  10. VITAMIN D3 50,000 IU (CHOLE) CAP [Concomitant]
  11. DEXAMETHASONE 4MG TABLETS [Concomitant]

REACTIONS (1)
  - Hospitalisation [None]

NARRATIVE: CASE EVENT DATE: 20250717
